FAERS Safety Report 25973078 (Version 1)
Quarter: 2025Q4

REPORT INFORMATION
  Report Type: Spontaneous
  Country: US (occurrence: US)
  Receive Date: 20251029
  Receipt Date: 20251029
  Transmission Date: 20260117
  Serious: Yes (Other)
  Sender: HIKMA
  Company Number: US-HIKMA PHARMACEUTICALS USA INC.-US-H14001-25-11391

PATIENT
  Sex: Female

DRUGS (1)
  1. BUPRENORPHINE AND NALOXONE [Suspect]
     Active Substance: BUPRENORPHINE HYDROCHLORIDE\NALOXONE HYDROCHLORIDE
     Indication: Mood swings
     Dosage: 2 DOSAGE FORM, SINGLE
     Route: 048

REACTIONS (8)
  - Brain fog [Recovering/Resolving]
  - Bladder disorder [Recovering/Resolving]
  - Hypertension [Recovering/Resolving]
  - Anticholinergic effect [Recovering/Resolving]
  - Withdrawal syndrome [Recovering/Resolving]
  - Vomiting [Recovering/Resolving]
  - Incorrect route of product administration [Unknown]
  - Product use in unapproved indication [Unknown]
